FAERS Safety Report 19139962 (Version 1)
Quarter: 2021Q2

REPORT INFORMATION
  Report Type: Spontaneous
  Country: BR (occurrence: BR)
  Receive Date: 20210415
  Receipt Date: 20210415
  Transmission Date: 20210717
  Serious: Yes (Death, Other)
  Sender: FDA-Public Use
  Company Number: BR-BAYER-2020-154126

PATIENT
  Age: 61 Year
  Sex: Male

DRUGS (3)
  1. STIVARGA [Suspect]
     Active Substance: REGORAFENIB
     Indication: METASTASES TO LIVER
     Dosage: 160 MG, QD
  2. STIVARGA [Suspect]
     Active Substance: REGORAFENIB
     Indication: COLORECTAL CANCER
     Dosage: 120 MG, QD
     Dates: start: 202001
  3. STIVARGA [Suspect]
     Active Substance: REGORAFENIB
     Indication: COLORECTAL CANCER
     Dosage: 120 MG, QD
     Dates: start: 20190717

REACTIONS (9)
  - Colorectal cancer metastatic [None]
  - Palmar-plantar erythrodysaesthesia syndrome [Recovering/Resolving]
  - Tumour marker increased [None]
  - Hepatic failure [Fatal]
  - Hypothyroidism [None]
  - Ascites [None]
  - General physical health deterioration [None]
  - Jaundice [None]
  - Off label use [None]

NARRATIVE: CASE EVENT DATE: 20190801
